FAERS Safety Report 8127979-9 (Version None)
Quarter: 2012Q1

REPORT INFORMATION
  Report Type: 
  Country: None (occurrence: None)
  Receive Date: 20120210
  Receipt Date: 20111114
  Transmission Date: 20120608
  Serious: No
  Sender: FDA-Public Use
  Company Number: US-GLAXOSMITHKLINE-A0953031A

PATIENT
  Age: 51 Year
  Sex: Male

DRUGS (2)
  1. PAXIL [Suspect]
     Indication: ANXIETY DISORDER
     Dosage: 37.5MG PER DAY
     Route: 048
     Dates: start: 20111017
  2. IBUPROFEN (ADVIL) [Concomitant]

REACTIONS (1)
  - DRUG INEFFECTIVE [None]
